FAERS Safety Report 5478364-X (Version None)
Quarter: 2007Q4

REPORT INFORMATION
  Report Type: 
  Country: None (occurrence: None)
  Receive Date: 20071005
  Receipt Date: 20070925
  Transmission Date: 20080405
  Serious: Yes (Hospitalization)
  Sender: FDA-Public Use
  Company Number: B0481009A

PATIENT
  Age: 55 Year
  Sex: Female
  Weight: 108 kg

DRUGS (7)
  1. AVANDAMET [Suspect]
     Dosage: 1TAB PER DAY
     Route: 048
     Dates: start: 20030601
  2. DILTIAZEM [Concomitant]
     Dosage: 300MG PER DAY
     Route: 048
  3. LAROXYL [Concomitant]
     Dosage: 50MG PER DAY
     Route: 048
  4. SERESTA [Concomitant]
     Dosage: 50MG PER DAY
     Route: 048
  5. TERCIAN [Concomitant]
     Dosage: 25MG PER DAY
     Route: 048
  6. ALLOPURINOL [Concomitant]
     Dosage: 100MG PER DAY
     Route: 048
  7. OMEPRAZOLE [Concomitant]
     Dosage: 20MG PER DAY
     Route: 048

REACTIONS (7)
  - BACK PAIN [None]
  - IMPAIRED SELF-CARE [None]
  - MOBILITY DECREASED [None]
  - MUSCLE CONTRACTURE [None]
  - MUSCULOSKELETAL STIFFNESS [None]
  - SPINAL COMPRESSION FRACTURE [None]
  - SPINAL DISORDER [None]
